FAERS Safety Report 17662691 (Version 1)
Quarter: 2020Q2

REPORT INFORMATION
  Report Type: Spontaneous
  Country: US (occurrence: US)
  Receive Date: 20200413
  Receipt Date: 20200413
  Transmission Date: 20200713
  Serious: Yes (Other)
  Sender: FDA-Public Use
  Company Number: US-PURDUE-USA-2020-0151641

PATIENT
  Age: 60 Year
  Sex: Female

DRUGS (5)
  1. OXYCONTIN [Suspect]
     Active Substance: OXYCODONE HYDROCHLORIDE
     Dosage: 2 X 40  MG, DAILY
     Route: 048
  2. OXYCONTIN [Suspect]
     Active Substance: OXYCODONE HYDROCHLORIDE
     Dosage: 2 X 40 MG, DAILY
     Route: 048
     Dates: end: 201906
  3. PERCOCET                           /00446701/ [Suspect]
     Active Substance: ACETAMINOPHEN\OXYCODONE HYDROCHLORIDE\OXYCODONE TEREPHTHALATE
     Indication: ARTHRITIS
     Dosage: 4 X 5 MG, DAILY
     Route: 048
     Dates: end: 2005
  4. OXYCONTIN [Suspect]
     Active Substance: OXYCODONE HYDROCHLORIDE
     Indication: ARTHRITIS
     Dosage: 2 X 20MG, DAILY
     Route: 048
     Dates: end: 2005
  5. OXYCONTIN [Suspect]
     Active Substance: OXYCODONE HYDROCHLORIDE
     Dosage: 3 X 40 MG, DAILY
     Route: 048

REACTIONS (8)
  - Anxiety [Unknown]
  - Generalised tonic-clonic seizure [Unknown]
  - Dry mouth [Unknown]
  - Drug dependence [Unknown]
  - Disability [Not Recovered/Not Resolved]
  - Mental disability [Unknown]
  - Nerve injury [Unknown]
  - Euphoric mood [Unknown]

NARRATIVE: CASE EVENT DATE: 20190527
